FAERS Safety Report 11727759 (Version 1)
Quarter: 2015Q4

REPORT INFORMATION
  Report Type: Spontaneous
  Country: US (occurrence: US)
  Receive Date: 20151110
  Receipt Date: 20151110
  Transmission Date: 20160304
  Serious: No
  Sender: FDA-Public Use
  Company Number: US-ELI_LILLY_AND_COMPANY-US201111002569

PATIENT
  Age: 60 Year
  Sex: Female

DRUGS (1)
  1. FORTEO [Suspect]
     Active Substance: TERIPARATIDE
     Indication: OSTEOPOROSIS
     Dosage: 20 UG, QD
     Route: 065
     Dates: start: 20110116

REACTIONS (12)
  - Fear of falling [Unknown]
  - Abdominal pain upper [Recovering/Resolving]
  - Irritability [Unknown]
  - Musculoskeletal stiffness [Unknown]
  - Abdominal discomfort [Recovering/Resolving]
  - Intentional product misuse [Unknown]
  - Muscle spasms [Not Recovered/Not Resolved]
  - Mental disorder [Unknown]
  - Mobility decreased [Not Recovered/Not Resolved]
  - Stress [Unknown]
  - Drug dose omission [Recovered/Resolved]
  - Muscle spasms [Unknown]

NARRATIVE: CASE EVENT DATE: 20111107
